FAERS Safety Report 12235104 (Version 1)
Quarter: 2016Q2

REPORT INFORMATION
  Report Type: Spontaneous
  Country: JP (occurrence: JP)
  Receive Date: 20160404
  Receipt Date: 20160404
  Transmission Date: 20160815
  Serious: Yes (Other)
  Sender: FDA-Public Use
  Company Number: JP-PFIZER INC-2016182156

PATIENT
  Age: 84 Year
  Sex: Male

DRUGS (3)
  1. SERENACE [Concomitant]
     Active Substance: HALOPERIDOL
  2. CERCINE [Concomitant]
     Active Substance: DIAZEPAM
  3. DIFLUCAN [Suspect]
     Active Substance: FLUCONAZOLE
     Dosage: UNK
     Dates: start: 20160318

REACTIONS (1)
  - Delirium [Recovered/Resolved]

NARRATIVE: CASE EVENT DATE: 20160320
